FAERS Safety Report 13647240 (Version 1)
Quarter: 2017Q2

REPORT INFORMATION
  Report Type: Spontaneous
  Country: SE (occurrence: SE)
  Receive Date: 20170613
  Receipt Date: 20170613
  Transmission Date: 20170830
  Serious: Yes (Hospitalization)
  Sender: FDA-Public Use
  Company Number: SE-TEVA-774956ISR

PATIENT
  Age: 33 Year
  Sex: Male

DRUGS (7)
  1. METADON ABCUR [Suspect]
     Active Substance: METHADONE HYDROCHLORIDE
     Indication: ANXIETY
     Route: 048
     Dates: start: 20150314, end: 20150314
  2. TRIOBE [Concomitant]
  3. ROCEPHALIN [Concomitant]
     Active Substance: CEFTRIAXONE
  4. XANOR [Suspect]
     Active Substance: ALPRAZOLAM
     Route: 048
     Dates: start: 20150314, end: 20150314
  5. PANODIL [Concomitant]
     Active Substance: ACETAMINOPHEN
  6. STESOLID ACTAVIS [Suspect]
     Active Substance: DIAZEPAM
     Route: 048
     Dates: start: 20150314, end: 20150314
  7. NALOXON B. BRAUN [Concomitant]

REACTIONS (2)
  - Intentional overdose [Recovered/Resolved]
  - Toxicity to various agents [Recovered/Resolved]

NARRATIVE: CASE EVENT DATE: 20150314
